FAERS Safety Report 12783148 (Version 1)
Quarter: 2016Q3

REPORT INFORMATION
  Report Type: Spontaneous
  Country: US (occurrence: US)
  Receive Date: 20160927
  Receipt Date: 20160927
  Transmission Date: 20161109
  Serious: Yes (Hospitalization, Other)
  Sender: FDA-Public Use
  Company Number: US-BEH-ZLBIGIV/02/09/USA

PATIENT
  Age: 82 Year
  Sex: Female
  Weight: 77.11 kg

DRUGS (4)
  1. NORVASC [Concomitant]
     Active Substance: AMLODIPINE BESYLATE
  2. ZOCOR [Concomitant]
     Active Substance: SIMVASTATIN
  3. CARIMUNE [Suspect]
     Active Substance: HUMAN IMMUNOGLOBULIN G
     Indication: CHRONIC INFLAMMATORY DEMYELINATING POLYRADICULONEUROPATHY
     Dosage: DAILY DOSE QUANTITY: 30, DAILY DOSE UNIT: G
     Route: 042
     Dates: start: 20020916, end: 20020920
  4. PREVACID [Concomitant]
     Active Substance: LANSOPRAZOLE

REACTIONS (8)
  - Dyspnoea [Unknown]
  - Hyponatraemia [Unknown]
  - Renal failure [Recovering/Resolving]
  - Fluid overload [Recovering/Resolving]
  - Gait disturbance [Unknown]
  - Asthenia [Unknown]
  - Anuria [Unknown]
  - Hyperkalaemia [Unknown]

NARRATIVE: CASE EVENT DATE: 20020921
